FAERS Safety Report 25548826 (Version 1)
Quarter: 2025Q3

REPORT INFORMATION
  Report Type: Spontaneous
  Country: EU (occurrence: EU)
  Receive Date: 20250714
  Receipt Date: 20250714
  Transmission Date: 20251021
  Serious: Yes (Hospitalization, Other)
  Sender: BOEHRINGER INGELHEIM
  Company Number: EU-BoehringerIngelheim-2025-BI-014308

PATIENT
  Age: 81 Year
  Sex: Female

DRUGS (2)
  1. DABIGATRAN [Suspect]
     Active Substance: DABIGATRAN
     Indication: Atrial fibrillation
     Route: 048
  2. DABIGATRAN [Suspect]
     Active Substance: DABIGATRAN

REACTIONS (2)
  - Paraparesis [Recovered/Resolved]
  - Spinal epidural haematoma [Recovered/Resolved with Sequelae]
